FAERS Safety Report 7892203-9 (Version None)
Quarter: 2011Q4

REPORT INFORMATION
  Report Type: 
  Country: None (occurrence: None)
  Receive Date: 20111104
  Receipt Date: 20111025
  Transmission Date: 20120403
  Serious: Yes (Disabling, Other)
  Sender: FDA-Public Use
  Company Number: BR-ASTRAZENECA-2011SE65203

PATIENT
  Age: 61 Year
  Sex: Male
  Weight: 94 kg

DRUGS (13)
  1. NATRILIX SR [Concomitant]
     Dosage: DAILY
     Route: 048
  2. ATENOLOL [Suspect]
     Route: 048
  3. FUROSEMIDE [Concomitant]
     Route: 048
  4. ATENOLOL [Suspect]
     Route: 048
  5. EXFORGE [Suspect]
     Dosage: 320/5 MG DAILY
     Route: 048
  6. ALDAZ [Concomitant]
     Route: 048
  7. RASILEZ [Concomitant]
     Route: 048
  8. GALVUS MET [Concomitant]
     Route: 048
  9. DIAMICRON MR [Concomitant]
     Dosage: 4 TABLETS DAILY
     Route: 048
  10. HYDROCHLOROTHIAZIDE [Concomitant]
     Route: 048
  11. NPH INSULIN [Concomitant]
     Dosage: 40 IU IN THE MORNING / 20 IU AT NIGHT
     Route: 058
  12. SIMVASTATIN [Concomitant]
     Route: 048
  13. ASPIRIN [Concomitant]
     Route: 048

REACTIONS (18)
  - WEIGHT INCREASED [None]
  - MUSCULAR WEAKNESS [None]
  - ISCHAEMIC STROKE [None]
  - DYSLIPIDAEMIA [None]
  - PROTEINURIA [None]
  - BLOOD PRESSURE INADEQUATELY CONTROLLED [None]
  - OEDEMA PERIPHERAL [None]
  - OBESITY [None]
  - METABOLIC SYNDROME [None]
  - STROKE IN EVOLUTION [None]
  - DIASTOLIC DYSFUNCTION [None]
  - MONOPARESIS [None]
  - GLYCOSURIA [None]
  - DIABETES MELLITUS [None]
  - BLOOD CREATININE INCREASED [None]
  - BLOOD GLUCOSE INCREASED [None]
  - VENTRICULAR HYPERTROPHY [None]
  - BLOOD TRIGLYCERIDES INCREASED [None]
